FAERS Safety Report 4408790-9 (Version None)
Quarter: 2004Q3

REPORT INFORMATION
  Report Type: 
  Country: None (occurrence: None)
  Receive Date: 20040727
  Receipt Date: 20040526
  Transmission Date: 20050211
  Serious: No
  Sender: FDA-Public Use
  Company Number: US-GLAXOSMITHKLINE-A0512224A

PATIENT
  Sex: Male

DRUGS (14)
  1. LEXIVA [Suspect]
     Indication: HIV INFECTION
     Dosage: 700MG TWICE PER DAY
     Route: 048
     Dates: start: 20040427, end: 20040514
  2. NORVIR [Concomitant]
  3. VIREAD [Concomitant]
  4. RISPERDAL [Concomitant]
  5. ZOLOFT [Concomitant]
  6. TRICOR [Concomitant]
  7. CLARITIN [Concomitant]
  8. GLUCOTROL XL [Concomitant]
  9. ASPIRIN [Concomitant]
  10. ZITHROMAX [Concomitant]
  11. BACTRIM [Concomitant]
  12. MULTIVITAMIN [Concomitant]
  13. RENACOR [Concomitant]
  14. NAPROXEN [Concomitant]

REACTIONS (6)
  - COUGH [None]
  - HEADACHE [None]
  - MUSCULOSKELETAL STIFFNESS [None]
  - NAUSEA [None]
  - PAIN [None]
  - PYREXIA [None]
